FAERS Safety Report 23493100 (Version 4)
Quarter: 2024Q4

REPORT INFORMATION
  Report Type: Spontaneous
  Country: CA (occurrence: CA)
  Receive Date: 20240207
  Receipt Date: 20241028
  Transmission Date: 20250115
  Serious: Yes (Death, Hospitalization, Other)
  Sender: SANDOZ
  Company Number: CA-002147023-PHHY2016CA125843

PATIENT
  Age: 36 Year
  Sex: Male

DRUGS (50)
  1. COSENTYX [Suspect]
     Active Substance: SECUKINUMAB
     Dosage: 150 MG, QMO
     Route: 058
     Dates: start: 20161005
  2. COSENTYX [Suspect]
     Active Substance: SECUKINUMAB
     Dosage: 150 MG, QMO
     Route: 058
     Dates: start: 20170205
  3. COSENTYX [Suspect]
     Active Substance: SECUKINUMAB
     Dosage: 150 MG, QMO
     Route: 058
     Dates: start: 2017
  4. COSENTYX [Suspect]
     Active Substance: SECUKINUMAB
     Indication: Ankylosing spondylitis
     Dosage: 150 MG, QW
     Route: 058
     Dates: start: 20160907, end: 20160928
  5. COSENTYX [Suspect]
     Active Substance: SECUKINUMAB
     Dosage: 150 MG
     Route: 058
  6. COSENTYX [Suspect]
     Active Substance: SECUKINUMAB
     Dosage: 150 MG
     Route: 058
  7. COSENTYX [Suspect]
     Active Substance: SECUKINUMAB
     Dosage: 300 MG, QMO
     Route: 058
     Dates: end: 202302
  8. INDOMETHACIN [Suspect]
     Active Substance: INDOMETHACIN
     Indication: Product used for unknown indication
     Dosage: 150 MG, QMO
     Route: 058
  9. INDOMETHACIN [Suspect]
     Active Substance: INDOMETHACIN
     Dosage: 150 MG, QMO
     Route: 058
  10. INDOMETHACIN [Suspect]
     Active Substance: INDOMETHACIN
     Dosage: 150 MG, QMO
     Route: 058
  11. INDOMETHACIN [Suspect]
     Active Substance: INDOMETHACIN
     Dosage: UNK
     Route: 065
  12. LEFLUNOMIDE [Suspect]
     Active Substance: LEFLUNOMIDE
     Indication: Product used for unknown indication
     Dosage: 150 MG, QMO
     Route: 058
  13. LEFLUNOMIDE [Suspect]
     Active Substance: LEFLUNOMIDE
     Dosage: 150 MG, QMO
     Route: 058
  14. LEFLUNOMIDE [Suspect]
     Active Substance: LEFLUNOMIDE
     Dosage: UNK
     Route: 065
  15. METHOTREXATE [Suspect]
     Active Substance: METHOTREXATE
     Indication: Product used for unknown indication
     Dosage: 150 MG, QMO
     Route: 058
     Dates: start: 20161005
  16. METHOTREXATE [Suspect]
     Active Substance: METHOTREXATE
     Dosage: UNK
     Route: 065
  17. CELEBREX [Concomitant]
     Active Substance: CELECOXIB
     Indication: Product used for unknown indication
     Dosage: UNK
     Route: 065
  18. CELEBREX [Concomitant]
     Active Substance: CELECOXIB
     Dosage: UNK
     Route: 065
  19. DULOXETINE HYDROCHLORIDE [Concomitant]
     Active Substance: DULOXETINE HYDROCHLORIDE
     Indication: Product used for unknown indication
     Dosage: 30 MG
     Route: 065
  20. EFFEXOR [Concomitant]
     Active Substance: VENLAFAXINE HYDROCHLORIDE
     Dosage: 300 MG, QMO
     Route: 058
  21. EFFEXOR [Concomitant]
     Active Substance: VENLAFAXINE HYDROCHLORIDE
     Indication: Product used for unknown indication
     Dosage: 37.5 MG, QD
     Route: 065
  22. ENBREL [Concomitant]
     Active Substance: ETANERCEPT
     Indication: Product used for unknown indication
     Dosage: UNK
     Route: 065
  23. HUMIRA [Concomitant]
     Active Substance: ADALIMUMAB
     Dosage: 20 MG
     Route: 058
  24. HUMIRA [Concomitant]
     Active Substance: ADALIMUMAB
     Indication: Product used for unknown indication
     Dosage: UNK
     Route: 058
  25. HUMIRA [Concomitant]
     Active Substance: ADALIMUMAB
     Dosage: UNK
     Route: 058
  26. IBUPROFEN [Concomitant]
     Active Substance: IBUPROFEN
     Indication: Product used for unknown indication
     Dosage: UNK
     Route: 065
  27. IBUPROFEN [Concomitant]
     Active Substance: IBUPROFEN
     Dosage: UNK
     Route: 065
  28. LYRICA [Concomitant]
     Active Substance: PREGABALIN
     Indication: Product used for unknown indication
     Dosage: 1 DOSAGE FORM, BID
     Route: 048
  29. LYRICA [Concomitant]
     Active Substance: PREGABALIN
     Dosage: 2 DF, QD
     Route: 048
  30. NAPROXEN [Concomitant]
     Active Substance: NAPROXEN
     Indication: Product used for unknown indication
     Dosage: UNK
     Route: 065
  31. NAPROXEN [Concomitant]
     Active Substance: NAPROXEN
     Dosage: UNK
     Route: 065
  32. PREDNISONE [Concomitant]
     Active Substance: PREDNISONE
     Dosage: 37.5 MG, QD
     Route: 065
  33. PREDNISONE [Concomitant]
     Active Substance: PREDNISONE
     Indication: Product used for unknown indication
     Dosage: UNK
     Route: 065
  34. QUETIAPINE FUMARATE [Concomitant]
     Active Substance: QUETIAPINE FUMARATE
     Dosage: 12.5 MG, QD
     Route: 065
  35. QUETIAPINE FUMARATE [Concomitant]
     Active Substance: QUETIAPINE FUMARATE
     Dosage: 12.5 MG, QD
     Route: 065
  36. QUETIAPINE FUMARATE [Concomitant]
     Active Substance: QUETIAPINE FUMARATE
     Indication: Product used for unknown indication
     Dosage: UNK
     Route: 065
  37. QUETIAPINE FUMARATE [Concomitant]
     Active Substance: QUETIAPINE FUMARATE
     Dosage: UNK
     Route: 065
  38. QUETIAPINE FUMARATE [Concomitant]
     Active Substance: QUETIAPINE FUMARATE
     Dosage: UNK
     Route: 065
  39. QUETIAPINE FUMARATE [Concomitant]
     Active Substance: QUETIAPINE FUMARATE
     Dosage: UNK
     Route: 065
  40. REMICADE [Concomitant]
     Active Substance: INFLIXIMAB
     Indication: Product used for unknown indication
     Dosage: UNK
     Route: 065
     Dates: end: 20160201
  41. SEROQUEL [Concomitant]
     Active Substance: QUETIAPINE FUMARATE
     Indication: Product used for unknown indication
     Dosage: 12.5 MG, QD
     Route: 065
  42. SEROQUEL [Concomitant]
     Active Substance: QUETIAPINE FUMARATE
     Dosage: UNK
     Route: 065
  43. SULFASALAZINE [Concomitant]
     Active Substance: SULFASALAZINE
     Indication: Product used for unknown indication
     Dosage: 12.5 MG, QD
     Route: 065
  44. SULFASALAZINE [Concomitant]
     Active Substance: SULFASALAZINE
     Dosage: UNK
     Route: 065
  45. SULFASALAZINE [Concomitant]
     Active Substance: SULFASALAZINE
     Dosage: UNK
     Route: 065
  46. VENLAFAXINE HYDROCHLORIDE [Concomitant]
     Active Substance: VENLAFAXINE HYDROCHLORIDE
     Indication: Product used for unknown indication
     Dosage: 300 MG, QMO
     Route: 065
  47. VENLAFAXINE HYDROCHLORIDE [Concomitant]
     Active Substance: VENLAFAXINE HYDROCHLORIDE
     Dosage: 300.0 MG, QMO
     Route: 065
  48. VENLAFAXINE HYDROCHLORIDE [Concomitant]
     Active Substance: VENLAFAXINE HYDROCHLORIDE
     Dosage: 300.0 MG, QMO
     Route: 065
  49. VENLAFAXINE HYDROCHLORIDE [Concomitant]
     Active Substance: VENLAFAXINE HYDROCHLORIDE
     Dosage: 37.5 MG, QD
     Route: 065
  50. VENLAFAXINE HYDROCHLORIDE [Concomitant]
     Active Substance: VENLAFAXINE HYDROCHLORIDE
     Dosage: 37.5 MG, QD
     Route: 065

REACTIONS (10)
  - Death [Fatal]
  - Cough [Not Recovered/Not Resolved]
  - Seizure [Unknown]
  - Ankylosing spondylitis [Not Recovered/Not Resolved]
  - Colitis ulcerative [Unknown]
  - Nasopharyngitis [Recovering/Resolving]
  - Arthralgia [Unknown]
  - Chronic idiopathic pain syndrome [Unknown]
  - Influenza [Recovering/Resolving]
  - Fibromyalgia [Unknown]

NARRATIVE: CASE EVENT DATE: 20170301
